FAERS Safety Report 15602912 (Version 3)
Quarter: 2018Q4

REPORT INFORMATION
  Report Type: Spontaneous
  Country: US (occurrence: US)
  Receive Date: 20181109
  Receipt Date: 20181217
  Transmission Date: 20190205
  Serious: No
  Sender: FDA-Public Use
  Company Number: PHEH2018US046806

PATIENT
  Sex: Female

DRUGS (1)
  1. MEKINIST [Suspect]
     Active Substance: TRAMETINIB DIMETHYL SULFOXIDE
     Indication: MALIGNANT NEOPLASM OF SPINAL CORD
     Dosage: 1 DF, QD
     Route: 048
     Dates: start: 20180215

REACTIONS (4)
  - Visual impairment [Unknown]
  - Hair texture abnormal [Unknown]
  - Nail infection [Unknown]
  - Dyspnoea [Unknown]
